FAERS Safety Report 4622822-4 (Version None)
Quarter: 2005Q1

REPORT INFORMATION
  Report Type: 
  Country: None (occurrence: None)
  Receive Date: 20050328
  Receipt Date: 20050328
  Transmission Date: 20050727
  Serious: Yes (Hospitalization)
  Sender: FDA-Public Use
  Company Number: None

PATIENT
  Age: 80 Year
  Sex: Male

DRUGS (5)
  1. DILANTIN [Suspect]
     Indication: CONVULSION
     Dosage: 300MG PO QHS
     Route: 048
     Dates: start: 20040304, end: 20050325
  2. METOPROLOL TARTRATE [Concomitant]
  3. FLUOXETINE [Concomitant]
  4. LEVOTHYROXINE [Concomitant]
  5. CORTISPORIN [Concomitant]

REACTIONS (4)
  - ANTICONVULSANT DRUG LEVEL ABOVE THERAPEUTIC [None]
  - DISORIENTATION [None]
  - DYSARTHRIA [None]
  - FALL [None]
